FAERS Safety Report 6949046-X (Version None)
Quarter: 2010Q3

REPORT INFORMATION
  Report Type: 
  Country: None (occurrence: None)
  Receive Date: 20100828
  Receipt Date: 20091204
  Transmission Date: 20110219
  Serious: No
  Sender: FDA-Public Use
  Company Number: US-ABBOTT-09P-163-0612794-00

PATIENT
  Sex: Female

DRUGS (1)
  1. NIASPAN [Suspect]
     Indication: PRODUCT USED FOR UNKNOWN INDICATION
     Dates: start: 20091202, end: 20091203

REACTIONS (5)
  - FEELING HOT [None]
  - HEART RATE INCREASED [None]
  - HYPERSENSITIVITY [None]
  - PRURITUS [None]
  - RASH [None]
